FAERS Safety Report 4303721-4 (Version None)
Quarter: 2004Q1

REPORT INFORMATION
  Report Type: 
  Country: None (occurrence: None)
  Receive Date: 20040225
  Receipt Date: 20040219
  Transmission Date: 20041129
  Serious: Yes (Other)
  Sender: FDA-Public Use
  Company Number: 200411304US

PATIENT
  Sex: 0

DRUGS (1)
  1. LOVENOX [Suspect]
     Route: 065

REACTIONS (7)
  - HERNIA CONGENITAL [None]
  - HYPOSPADIAS [None]
  - MATERNAL DRUGS AFFECTING FOETUS [None]
  - METABOLIC DISORDER [None]
  - MULTIPLE CONGENITAL ABNORMALITIES [None]
  - SYNOSTOSIS [None]
  - TOOTH HYPOPLASIA [None]
